FAERS Safety Report 6699606-9 (Version None)
Quarter: 2010Q2

REPORT INFORMATION
  Report Type: 
  Country: None (occurrence: None)
  Receive Date: 20100428
  Receipt Date: 20100420
  Transmission Date: 20101027
  Serious: Yes (Hospitalization)
  Sender: FDA-Public Use
  Company Number: US-BIOGENIDEC-2010BI011379

PATIENT
  Age: 63 Year
  Sex: Female

DRUGS (2)
  1. AVONEX [Suspect]
     Indication: MULTIPLE SCLEROSIS
     Route: 030
     Dates: start: 20000321, end: 20040308
  2. AVONEX [Suspect]
     Route: 030
     Dates: start: 20040414

REACTIONS (2)
  - CEREBROVASCULAR DISORDER [None]
  - MULTIPLE SCLEROSIS RELAPSE [None]
